FAERS Safety Report 9486571 (Version 3)
Quarter: 2013Q4

REPORT INFORMATION
  Report Type: Report from Study
  Country: CL (occurrence: CL)
  Receive Date: 20130829
  Receipt Date: 20131008
  Transmission Date: 20140711
  Serious: Yes (Hospitalization, Other)
  Sender: FDA-Public Use
  Company Number: PHHY2013CL093548

PATIENT
  Age: 27 Year
  Sex: Female

DRUGS (2)
  1. LEPONEX [Suspect]
     Indication: BIPOLAR DISORDER
     Dosage: 100 MG, QD
     Route: 048
     Dates: start: 20130814
  2. LEPONEX [Suspect]
     Indication: SUICIDAL BEHAVIOUR

REACTIONS (5)
  - Concomitant disease aggravated [Not Recovered/Not Resolved]
  - Personality change [Unknown]
  - Toxic epidermal necrolysis [Unknown]
  - Suicidal ideation [Unknown]
  - Neutropenia [Unknown]
